FAERS Safety Report 22540957 (Version 1)
Quarter: 2023Q2

REPORT INFORMATION
  Report Type: Spontaneous
  Country: US (occurrence: US)
  Receive Date: 20230609
  Receipt Date: 20230609
  Transmission Date: 20230722
  Serious: No
  Sender: FDA-Public Use
  Company Number: US-PFIZER INC-202300213638

PATIENT
  Age: 66 Year
  Sex: Male
  Weight: 86.183 kg

DRUGS (2)
  1. MEKTOVI [Suspect]
     Active Substance: BINIMETINIB
     Indication: Malignant melanoma
     Dosage: 90 MG, DAILY, (SIX PILLS A DAY)
  2. MEKTOVI [Suspect]
     Active Substance: BINIMETINIB
     Dosage: 15 MG, DAILY (FOUR PILLS A DAY AND EACH PILL IS 15MG)

REACTIONS (1)
  - Rash [Recovering/Resolving]
